FAERS Safety Report 25952865 (Version 1)
Quarter: 2025Q4

REPORT INFORMATION
  Report Type: Spontaneous
  Country: US (occurrence: US)
  Receive Date: 20251023
  Receipt Date: 20251023
  Transmission Date: 20260118
  Serious: No
  Sender: MERCK SHARP & DOHME LLC
  Company Number: US-009507513-2342213

PATIENT
  Age: 18 Year
  Sex: Female

DRUGS (7)
  1. APREPITANT [Suspect]
     Active Substance: APREPITANT
     Indication: Cannabinoid hyperemesis syndrome
     Dosage: TIME INTERVAL: TOTAL
     Route: 048
  2. APREPITANT [Suspect]
     Active Substance: APREPITANT
     Indication: Cannabinoid hyperemesis syndrome
     Dosage: TIME INTERVAL: TOTAL
     Route: 048
  3. ONDANSETRON [Concomitant]
     Active Substance: ONDANSETRON
     Indication: Cannabinoid hyperemesis syndrome
  4. METOCLOPRAMIDE [Concomitant]
     Active Substance: METOCLOPRAMIDE
     Indication: Cannabinoid hyperemesis syndrome
  5. PANTOPRAZOLE [Concomitant]
     Active Substance: PANTOPRAZOLE
     Indication: Cannabinoid hyperemesis syndrome
  6. CAPSAICIN [Concomitant]
     Active Substance: CAPSAICIN
     Indication: Cannabinoid hyperemesis syndrome
     Route: 061
  7. HALOPERIDOL [Concomitant]
     Active Substance: HALOPERIDOL
     Indication: Cannabinoid hyperemesis syndrome

REACTIONS (1)
  - Off label use [Unknown]
